FAERS Safety Report 7740880-5 (Version None)
Quarter: 2011Q3

REPORT INFORMATION
  Report Type: 
  Country: None (occurrence: None)
  Receive Date: 20110909
  Receipt Date: 20110905
  Transmission Date: 20111222
  Serious: Yes (Death, Other)
  Sender: FDA-Public Use
  Company Number: PHHY2011JP78964

PATIENT

DRUGS (3)
  1. FLUOROURACIL [Concomitant]
  2. OXALIPLATIN [Suspect]
     Indication: COLORECTAL CANCER
     Dosage: 85 MG/M2, UNK
     Route: 042
  3. LEUCOVORIN CALCIUM [Concomitant]
     Route: 042

REACTIONS (2)
  - DEATH [None]
  - PERIPHERAL SENSORY NEUROPATHY [None]
